FAERS Safety Report 24749420 (Version 1)
Quarter: 2024Q4

REPORT INFORMATION
  Report Type: Spontaneous
  Country: US (occurrence: None)
  Receive Date: 20241218
  Receipt Date: 20241218
  Transmission Date: 20250115
  Serious: No
  Sender: Public
  Company Number: None

PATIENT
  Age: 74 Year
  Sex: Female
  Weight: 96.75 kg

DRUGS (7)
  1. ZEPBOUND [Suspect]
     Active Substance: TIRZEPATIDE
     Indication: Obesity
     Dosage: OTHER QUANTITY : 4 INJECTION(S);?OTHER FREQUENCY : ONCE WEEKLY X4;?
     Route: 058
  2. PREMPRO [Suspect]
     Active Substance: ESTROGENS, CONJUGATED\MEDROXYPROGESTERONE ACETATE
  3. ZEPBOUND [Suspect]
     Active Substance: TIRZEPATIDE
  4. lisinopril 20 mg, [Concomitant]
  5. levothyroxine 106 mcg [Concomitant]
  6. VITAMIN B12 [Concomitant]
     Active Substance: CYANOCOBALAMIN
  7. ASPIRIN [Concomitant]
     Active Substance: ASPIRIN

REACTIONS (9)
  - Vaginal haemorrhage [None]
  - Uterine prolapse [None]
  - Depression [None]
  - Irritability [None]
  - Insomnia [None]
  - Diarrhoea [None]
  - Fatigue [None]
  - Lip dry [None]
  - Dry mouth [None]

NARRATIVE: CASE EVENT DATE: 20241209
